FAERS Safety Report 7143995-8 (Version None)
Quarter: 2010Q4

REPORT INFORMATION
  Report Type: 
  Country: None (occurrence: None)
  Receive Date: 20101208
  Receipt Date: 20101129
  Transmission Date: 20110411
  Serious: Yes (Hospitalization)
  Sender: FDA-Public Use
  Company Number: US-BIOGENIDEC-2010BI031644

PATIENT
  Age: 34 Year
  Sex: Female

DRUGS (1)
  1. TYSABRI [Suspect]
     Indication: MULTIPLE SCLEROSIS
     Route: 042
     Dates: start: 20091230, end: 20100709

REACTIONS (7)
  - ANAEMIA [None]
  - DEPRESSION [None]
  - DRUG INEFFECTIVE [None]
  - MALNUTRITION [None]
  - NEUROMYELITIS OPTICA [None]
  - OPTIC NEURITIS [None]
  - REBOUND EFFECT [None]
